FAERS Safety Report 9768346 (Version 2)
Quarter: 2014Q1

REPORT INFORMATION
  Report Type: Spontaneous
  Country: JP (occurrence: JP)
  Receive Date: 20131217
  Receipt Date: 20140106
  Transmission Date: 20141002
  Serious: Yes (Other)
  Sender: FDA-Public Use
  Company Number: JP-UCBSA-106213

PATIENT
  Age: 80 Year
  Sex: Male

DRUGS (6)
  1. NEUPRO [Suspect]
     Indication: PARKINSON^S DISEASE
     Dosage: TOPICAL ODT
     Route: 061
     Dates: start: 20131030, end: 20131126
  2. SODIUM VALPROATE [Concomitant]
  3. TULOBUTEROL [Concomitant]
     Dosage: DAILY DOSE: 2 MG
     Dates: start: 20131101, end: 20131126
  4. TAMSULOSIN HYDROCHLORIDE [Concomitant]
     Dosage: DAILY DOSE: 0.2 MG
     Dates: start: 20131107, end: 20131225
  5. MOSAPRIDE CITRATE HYDRATE [Concomitant]
     Dosage: DAILY DOSE: 15 MG
     Dates: start: 20131115, end: 20131126
  6. MAGNESIUM OXIDE [Concomitant]
     Dosage: DAILY DOSE: 330 MG
     Dates: start: 20131115, end: 20131226

REACTIONS (2)
  - Alanine aminotransferase increased [Recovered/Resolved]
  - Aspartate aminotransferase increased [Recovered/Resolved]
